FAERS Safety Report 7358970-8 (Version None)
Quarter: 2011Q1

REPORT INFORMATION
  Report Type: 
  Country: None (occurrence: None)
  Receive Date: 20110307
  Receipt Date: 20110217
  Transmission Date: 20110831
  Serious: Yes (Hospitalization)
  Sender: FDA-Public Use
  Company Number: 1000019082

PATIENT
  Age: 78 Year
  Sex: Female
  Weight: 61 kg

DRUGS (8)
  1. LEVOMEPROMAZINE (LEVOPROMAZINE MALEATE) (LEVOPROMAZINE MALEATE) [Concomitant]
  2. BETAHISTIN (BETAHISTINE HYDROCHLORIDE) (BETAHISTINE HYDROCHLORIDE) [Concomitant]
  3. ATENOLOL [Concomitant]
  4. MEMANTINE [Suspect]
     Indication: DEMENTIA ALZHEIMER'S TYPE
     Dosage: 20 MG (20 MG, 1 IN 1 D), ORAL
     Route: 048
     Dates: start: 20100416, end: 20100602
  5. RAMIPRIL [Concomitant]
  6. SIMVASTATN (SIMVASTATIN) (SIMVASTATIN) [Concomitant]
  7. REMINYL (GALANTAMINE) (CAPSULES) [Suspect]
     Indication: DEMENTIA
     Dosage: 16 MG
     Dates: end: 20100602
  8. REMINYL (GALANTAMINE) (CAPSULES) [Suspect]
     Indication: DEPRESSION
     Dosage: 16 MG
     Dates: end: 20100602

REACTIONS (28)
  - AMNESIA [None]
  - JUDGEMENT IMPAIRED [None]
  - ANOSOGNOSIA [None]
  - COMMUNICATION DISORDER [None]
  - ANXIETY DISORDER DUE TO A GENERAL MEDICAL CONDITION [None]
  - POLYNEUROPATHY [None]
  - DISTURBANCE IN ATTENTION [None]
  - HALLUCINATION, VISUAL [None]
  - ABNORMAL BEHAVIOUR [None]
  - AVOIDANT PERSONALITY DISORDER [None]
  - DEMENTIA ALZHEIMER'S TYPE [None]
  - AFFECT LABILITY [None]
  - AFFECTIVE DISORDER [None]
  - AGITATION [None]
  - PHOBIA [None]
  - ANXIETY [None]
  - RENAL FAILURE CHRONIC [None]
  - FAECAL INCONTINENCE [None]
  - DISORIENTATION [None]
  - MENTAL IMPAIRMENT [None]
  - BRADYPHRENIA [None]
  - MOBILITY DECREASED [None]
  - SPEECH DISORDER [None]
  - GRANDIOSITY [None]
  - DELUSION [None]
  - RESTLESSNESS [None]
  - HYPERTENSIVE NEPHROPATHY [None]
  - RENAL FAILURE [None]
